FAERS Safety Report 18993159 (Version 1)
Quarter: 2021Q1

REPORT INFORMATION
  Report Type: Spontaneous
  Country: US (occurrence: US)
  Receive Date: 20210310
  Receipt Date: 20210310
  Transmission Date: 20210420
  Serious: Yes (Other)
  Sender: FDA-Public Use
  Company Number: US-AMERICAN REGENT INC-2021000605

PATIENT
  Age: 78 Year
  Sex: Female

DRUGS (3)
  1. VENOFER [Suspect]
     Active Substance: IRON SUCROSE
     Indication: PRODUCT USED FOR UNKNOWN INDICATION
     Dosage: UNK, FIRST DOSE
     Route: 065
     Dates: start: 2017, end: 2017
  2. VENOFER [Suspect]
     Active Substance: IRON SUCROSE
     Dosage: UNK, THIRD DOSE
     Route: 065
     Dates: start: 2017, end: 2017
  3. VENOFER [Suspect]
     Active Substance: IRON SUCROSE
     Dosage: UNK, SECOND DOSE
     Route: 065
     Dates: start: 2017, end: 2017

REACTIONS (5)
  - Paraesthesia [Unknown]
  - Musculoskeletal stiffness [Unknown]
  - Abdominal discomfort [Unknown]
  - Gait disturbance [Unknown]
  - Loss of consciousness [Unknown]

NARRATIVE: CASE EVENT DATE: 2017
